FAERS Safety Report 7306350-3 (Version None)
Quarter: 2011Q1

REPORT INFORMATION
  Report Type: 
  Country: None (occurrence: None)
  Receive Date: 20110222
  Receipt Date: 20110217
  Transmission Date: 20110831
  Serious: Yes (Hospitalization, Other)
  Sender: FDA-Public Use
  Company Number: US-PFIZER INC-2011035496

PATIENT
  Sex: Male

DRUGS (2)
  1. METHADONE [Suspect]
  2. CHANTIX [Suspect]

REACTIONS (2)
  - OVERDOSE [None]
  - CARDIAC ARREST [None]
